APPROVED DRUG PRODUCT: CLEMASTINE FUMARATE
Active Ingredient: CLEMASTINE FUMARATE
Strength: EQ 0.5MG BASE/5ML
Dosage Form/Route: SYRUP;ORAL
Application: A073399 | Product #001 | TE Code: AA
Applicant: GENUS LIFESCIENCES INC
Approved: Jun 30, 1994 | RLD: No | RS: Yes | Type: RX